FAERS Safety Report 9922003 (Version 1)
Quarter: 2014Q1

REPORT INFORMATION
  Report Type: Spontaneous
  Country: US (occurrence: None)
  Receive Date: 20140221
  Receipt Date: 20140221
  Transmission Date: 20141002
  Serious: Yes (Other)
  Sender: FDA-Public Use
  Company Number: None

PATIENT
  Age: 88 Year
  Sex: Male
  Weight: 80.74 kg

DRUGS (9)
  1. MYRBETRIQ [Suspect]
     Indication: MICTURITION URGENCY
     Route: 048
     Dates: start: 20140203, end: 20140210
  2. MYRBETRIQ [Suspect]
     Indication: URINARY INCONTINENCE
     Route: 048
     Dates: start: 20140203, end: 20140210
  3. DIOVAN [Concomitant]
  4. BABY ASPIRIN [Concomitant]
  5. VITAMIN B12 [Concomitant]
  6. FOLIC ACID [Concomitant]
  7. IRON [Concomitant]
  8. CALCIUM [Concomitant]
  9. FISH OIL [Concomitant]

REACTIONS (2)
  - Weight decreased [None]
  - Constipation [None]
